FAERS Safety Report 20327386 (Version 2)
Quarter: 2022Q1

REPORT INFORMATION
  Report Type: Spontaneous
  Country: US (occurrence: None)
  Receive Date: 20220112
  Receipt Date: 20220224
  Transmission Date: 20220423
  Serious: No
  Sender: FDA-Public Use
  Company Number: 2021A879271

PATIENT
  Sex: Female
  Weight: 20.4 kg

DRUGS (1)
  1. SYMBICORT [Suspect]
     Active Substance: BUDESONIDE\FORMOTEROL FUMARATE DIHYDRATE
     Indication: Asthma
     Dosage: 80/4.5MCG 2 PUFFS TWICE DAILY
     Route: 055
     Dates: start: 20211115

REACTIONS (4)
  - Nasopharyngitis [Not Recovered/Not Resolved]
  - Device use issue [Unknown]
  - Intentional device misuse [Unknown]
  - Device issue [Unknown]
